FAERS Safety Report 8695148 (Version 2)
Quarter: 2013Q4

REPORT INFORMATION
  Report Type: Spontaneous
  Country: US (occurrence: US)
  Receive Date: 20120731
  Receipt Date: 20131107
  Transmission Date: 20140711
  Serious: Yes (Other)
  Sender: FDA-Public Use
  Company Number: US-009507513-1207USA009895

PATIENT
  Age: 78 Year
  Sex: Male

DRUGS (3)
  1. ZOCOR [Suspect]
     Route: 048
  2. LIPITOR [Suspect]
  3. RAZADYNE [Concomitant]

REACTIONS (2)
  - Dementia [Unknown]
  - Amnesia [Unknown]
